FAERS Safety Report 23378850 (Version 1)
Quarter: 2024Q1

REPORT INFORMATION
  Report Type: Spontaneous
  Country: US (occurrence: None)
  Receive Date: 20240105
  Receipt Date: 20240105
  Transmission Date: 20240409
  Serious: Yes (Other)
  Sender: FDA-Public Use
  Company Number: None

PATIENT
  Age: 12 Year
  Sex: Male
  Weight: 39 kg

DRUGS (2)
  1. OMNITROPE [Suspect]
     Active Substance: SOMATROPIN
     Indication: Growth hormone deficiency
     Dosage: FREQUENCY : AT BEDTIME;?
     Route: 058
  2. OMNITROPE [Suspect]
     Active Substance: SOMATROPIN
     Indication: Growth hormone deficiency
     Dosage: FREQUENCY : AT BEDTIME;?
     Route: 058

REACTIONS (5)
  - Device dispensing error [None]
  - Incorrect dose administered [None]
  - Product packaging confusion [None]
  - Product label confusion [None]
  - Product communication issue [None]

NARRATIVE: CASE EVENT DATE: 20230707
